FAERS Safety Report 9955018 (Version 1)
Quarter: 2014Q1

REPORT INFORMATION
  Report Type: Spontaneous
  Country: PR (occurrence: PR)
  Receive Date: 20140304
  Receipt Date: 20140304
  Transmission Date: 20141002
  Serious: No
  Sender: FDA-Public Use
  Company Number: PR-ABBVIE-13P-131-1085389-00

PATIENT
  Sex: Female
  Weight: 56.75 kg

DRUGS (4)
  1. HUMIRA [Suspect]
     Indication: PSORIATIC ARTHROPATHY
     Route: 058
     Dates: end: 201303
  2. METHOTREXATE [Concomitant]
     Indication: ARTHRITIS
     Route: 048
  3. PREDNISONE [Concomitant]
     Indication: ARTHRITIS
     Route: 048
  4. FOLIC ACID [Concomitant]
     Indication: ARTHRITIS
     Route: 048

REACTIONS (1)
  - Weight decreased [Recovering/Resolving]
